FAERS Safety Report 9861792 (Version 1)
Quarter: 2014Q1

REPORT INFORMATION
  Report Type: Spontaneous
  Country: CN (occurrence: CN)
  Receive Date: 20140203
  Receipt Date: 20140203
  Transmission Date: 20141002
  Serious: Yes (Hospitalization)
  Sender: FDA-Public Use
  Company Number: CN-ASTRAZENECA-2014SE06285

PATIENT
  Sex: 0

DRUGS (2)
  1. SYMBICORT TURBUHALER [Suspect]
     Dosage: 160/4.5 MCG, TWO TIMES A DAY
     Route: 055
     Dates: start: 20140115, end: 20140117
  2. SYMBICORT TURBUHALER [Suspect]
     Dosage: 80/4.5 MCG, UNKNOWN FREQUENCY
     Route: 055

REACTIONS (1)
  - Asthma [Unknown]
